FAERS Safety Report 17957566 (Version 1)
Quarter: 2020Q2

REPORT INFORMATION
  Report Type: Spontaneous
  Country: GR (occurrence: GR)
  Receive Date: 20200629
  Receipt Date: 20200629
  Transmission Date: 20200714
  Serious: Yes (Other)
  Sender: FDA-Public Use
  Company Number: GR-BAUSCH-BL-2020-018264

PATIENT
  Age: 68 Year
  Sex: Female

DRUGS (1)
  1. KYNTHEUM [Suspect]
     Active Substance: BRODALUMAB
     Indication: PRODUCT USED FOR UNKNOWN INDICATION
     Dosage: 210 MG IN WEEKS 0,1,2 AND THEN BI-WEEKLY FOR 6 MONTHS
     Route: 058

REACTIONS (1)
  - Syncope [Recovered/Resolved]
